FAERS Safety Report 6671664-7 (Version None)
Quarter: 2010Q2

REPORT INFORMATION
  Report Type: 
  Country: None (occurrence: None)
  Receive Date: 20100406
  Receipt Date: 20100406
  Transmission Date: 20101027
  Serious: No
  Sender: FDA-Public Use
  Company Number: None

PATIENT
  Age: 59 Year
  Sex: Female
  Weight: 96.3 kg

DRUGS (1)
  1. DOXORUBICIN HCL [Suspect]
     Indication: MULTIPLE MYELOMA
     Dosage: 50 MG ONCE IV
     Route: 042
     Dates: start: 20091218, end: 20091218

REACTIONS (3)
  - EXTRAVASATION [None]
  - INFUSION SITE ERYTHEMA [None]
  - INFUSION SITE OEDEMA [None]
